FAERS Safety Report 14134902 (Version 2)
Quarter: 2018Q1

REPORT INFORMATION
  Report Type: Spontaneous
  Country: US (occurrence: US)
  Receive Date: 20171026
  Receipt Date: 20180125
  Transmission Date: 20180508
  Serious: No
  Sender: FDA-Public Use
  Company Number: US-AMGEN-USASP2017136747

PATIENT
  Age: 69 Year
  Sex: Female

DRUGS (1)
  1. REPATHA [Suspect]
     Active Substance: EVOLOCUMAB
     Indication: BLOOD CHOLESTEROL INCREASED
     Dosage: UNK UNK, Q2WK
     Route: 065
     Dates: start: 20170829

REACTIONS (19)
  - Nasal congestion [Unknown]
  - Feeling abnormal [Unknown]
  - Muscle spasms [Unknown]
  - Decreased appetite [Unknown]
  - Mobility decreased [Recovered/Resolved]
  - Headache [Unknown]
  - Back pain [Recovered/Resolved]
  - Peripheral swelling [Unknown]
  - Dizziness [Recovered/Resolved]
  - Nausea [Unknown]
  - Flatulence [Unknown]
  - Vomiting [Unknown]
  - Breast pain [Unknown]
  - Abdominal pain [Unknown]
  - Anxiety [Unknown]
  - Discomfort [Unknown]
  - Abdominal distension [Unknown]
  - Abdominal discomfort [Unknown]
  - Fatigue [Unknown]

NARRATIVE: CASE EVENT DATE: 2017
